FAERS Safety Report 5306553-3 (Version None)
Quarter: 2007Q2

REPORT INFORMATION
  Report Type: 
  Country: None (occurrence: None)
  Receive Date: 20070424
  Receipt Date: 20070412
  Transmission Date: 20071010
  Serious: Yes (Hospitalization)
  Sender: FDA-Public Use
  Company Number: AR-PFIZER INC-2007024950

PATIENT
  Sex: Female
  Weight: 74 kg

DRUGS (10)
  1. SUTENT [Suspect]
     Dosage: DAILY DOSE:50MG-FREQ: 4 WEEKS ON/2 OFF
  2. SUCRALFATE [Concomitant]
  3. DIAZEPAM [Concomitant]
  4. CLONAZEPAM [Concomitant]
     Dosage: DAILY DOSE:4MG
  5. SERTRALINE [Concomitant]
  6. OMEPRAZOLE [Concomitant]
  7. DOMPERIDONE [Concomitant]
  8. IBUPROFEN [Concomitant]
  9. DEXTROPROPOXYPHENE [Concomitant]
  10. IBUPROFEN [Concomitant]

REACTIONS (1)
  - PANIC REACTION [None]
